FAERS Safety Report 10182436 (Version 1)
Quarter: 2014Q2

REPORT INFORMATION
  Report Type: Spontaneous
  Country: US (occurrence: US)
  Receive Date: 20140520
  Receipt Date: 20140520
  Transmission Date: 20141212
  Serious: Yes (Hospitalization, Other)
  Sender: FDA-Public Use
  Company Number: US-TEVA-482026USA

PATIENT
  Sex: Female

DRUGS (1)
  1. RALOXIFENE [Suspect]

REACTIONS (3)
  - Adverse event [Unknown]
  - Hospitalisation [Unknown]
  - Coeliac disease [Not Recovered/Not Resolved]
